FAERS Safety Report 6575136-X (Version None)
Quarter: 2010Q1

REPORT INFORMATION
  Report Type: 
  Country: None (occurrence: None)
  Receive Date: 20100209
  Receipt Date: 20100203
  Transmission Date: 20100710
  Serious: Yes (Life-Threatening)
  Sender: FDA-Public Use
  Company Number: IT-WYE-G05492610

PATIENT
  Sex: Male

DRUGS (1)
  1. TAZOCIN [Suspect]
     Indication: PNEUMONIA ASPIRATION
     Route: 042
     Dates: start: 20100107, end: 20100108

REACTIONS (3)
  - BRONCHOSPASM [None]
  - HYPOTENSION [None]
  - OXYGEN SATURATION DECREASED [None]
